FAERS Safety Report 7078003-0 (Version None)
Quarter: 2010Q4

REPORT INFORMATION
  Report Type: 
  Country: None (occurrence: None)
  Receive Date: 20101102
  Receipt Date: 20101025
  Transmission Date: 20110411
  Serious: Yes (Other)
  Sender: FDA-Public Use
  Company Number: US-BIOGENIDEC-2009BI028258

PATIENT
  Age: 46 Year
  Sex: Female
  Weight: 61 kg

DRUGS (3)
  1. AVONEX [Suspect]
     Indication: MULTIPLE SCLEROSIS
     Route: 030
     Dates: start: 19970701, end: 20030101
  2. AVONEX [Suspect]
     Route: 030
     Dates: start: 20030101
  3. PROVIGIL [Concomitant]
     Indication: FATIGUE

REACTIONS (4)
  - BASAL CELL CARCINOMA [None]
  - BREAST CANCER IN SITU [None]
  - FIBROMYALGIA [None]
  - MULTIPLE SCLEROSIS RELAPSE [None]
